FAERS Safety Report 22663606 (Version 2)
Quarter: 2023Q4

REPORT INFORMATION
  Report Type: Report from Study
  Country: US (occurrence: US)
  Receive Date: 20230703
  Receipt Date: 20231219
  Transmission Date: 20240110
  Serious: No
  Sender: FDA-Public Use
  Company Number: US-ACADIA PHARMACEUTICALS INC.-ACA-2023-TRF-002296

PATIENT
  Age: 4 Year
  Sex: Female

DRUGS (6)
  1. DAYBUE [Suspect]
     Active Substance: TROFINETIDE
     Indication: Rett syndrome
     Dosage: 30 MILLILITER, BID
     Route: 048
     Dates: start: 20230516
  2. DAYBUE [Suspect]
     Active Substance: TROFINETIDE
     Dosage: 15 MILLILITER FOR A WEEK
     Route: 048
  3. DAYBUE [Suspect]
     Active Substance: TROFINETIDE
     Dosage: 18 MILLILITER  FOR A WEEK
     Route: 048
  4. DAYBUE [Suspect]
     Active Substance: TROFINETIDE
     Dosage: 20 MILLILITER FOR A WEEK
     Route: 048
  5. DAYBUE [Suspect]
     Active Substance: TROFINETIDE
     Dosage: 25 MILLILITER
     Route: 048
     Dates: start: 20231121
  6. DAYBUE [Suspect]
     Active Substance: TROFINETIDE
     Dosage: 23 MILLILITER
     Route: 048

REACTIONS (8)
  - Gastrooesophageal reflux disease [Unknown]
  - Refusal of treatment by patient [Unknown]
  - Psychomotor hyperactivity [Unknown]
  - Abdominal discomfort [Unknown]
  - Underdose [Unknown]
  - Breath holding [Not Recovered/Not Resolved]
  - Diarrhoea [Unknown]
  - Diarrhoea [Not Recovered/Not Resolved]

NARRATIVE: CASE EVENT DATE: 20230519
